FAERS Safety Report 14392071 (Version 2)
Quarter: 2018Q2

REPORT INFORMATION
  Report Type: Spontaneous
  Country: US (occurrence: US)
  Receive Date: 20180116
  Receipt Date: 20180406
  Transmission Date: 20180711
  Serious: Yes (Other)
  Sender: FDA-Public Use
  Company Number: US-GLAXOSMITHKLINE-US2018002402

PATIENT
  Age: 73 Year
  Sex: Male

DRUGS (3)
  1. FLUARIX QUADRIVALENT 2017/2018 [Suspect]
     Active Substance: INFLUENZA A VIRUS A/HONG KONG/4801/2014 X-263B (H3N2) ANTIGEN (FORMALDEHYDE INACTIVATED)\INFLUENZA A VIRUS A/SINGAPORE/GP1908/2015 IVR-180 (H1N1) ANTIGEN (FORMALDEHYDE INACTIVATED)\INFLUENZA B VIRUS B/BRISBANE/60/2008 ANTIGEN (FORMALDEHYDE INACTIVATED)\INFLUENZA B VIRUS B/PHUKET/3073/2013 ANTIGEN (F
     Indication: PROPHYLAXIS
  2. AVANDIA [Suspect]
     Active Substance: ROSIGLITAZONE MALEATE
     Dosage: UNK
  3. AVANDIA [Suspect]
     Active Substance: ROSIGLITAZONE MALEATE
     Indication: DIABETES MELLITUS
     Dosage: 8 MG, QD
     Dates: start: 200701

REACTIONS (2)
  - Influenza [Recovering/Resolving]
  - Vaccination failure [Unknown]

NARRATIVE: CASE EVENT DATE: 20180101
